FAERS Safety Report 4338955-6 (Version None)
Quarter: 2004Q2

REPORT INFORMATION
  Report Type: 
  Country: None (occurrence: None)
  Receive Date: 20040409
  Receipt Date: 20040331
  Transmission Date: 20050107
  Serious: Yes (Disabling)
  Sender: FDA-Public Use
  Company Number: CIP04000520

PATIENT
  Age: 48 Year
  Sex: Male
  Weight: 72.6 kg

DRUGS (9)
  1. ACTONEL [Suspect]
     Indication: OSTEOPOROSIS
     Dosage: 35 MG ONCE WEEKLY, ORAL
     Route: 048
     Dates: start: 20030101, end: 20040101
  2. PENTASA [Concomitant]
  3. CIPRO ^BAYER^ (CIPROFLOXACIN) [Concomitant]
  4. ELAVIL [Concomitant]
  5. PRAVACHOL [Concomitant]
  6. ENTOCORT (BUDESONIDE) [Concomitant]
  7. DIOVANE (VALSARTAN) [Concomitant]
  8. HYDROCHLOROTHIAZIDE [Concomitant]
  9. TIAZAC [Concomitant]

REACTIONS (5)
  - CONDITION AGGRAVATED [None]
  - CROHN'S DISEASE [None]
  - HAEMATOCRIT DECREASED [None]
  - HAEMOGLOBIN DECREASED [None]
  - OBSTRUCTION [None]
